FAERS Safety Report 5832395-6 (Version None)
Quarter: 2008Q3

REPORT INFORMATION
  Report Type: 
  Country: None (occurrence: None)
  Receive Date: 20080804
  Receipt Date: 20080725
  Transmission Date: 20090109
  Serious: Yes (Disabling, Other)
  Sender: FDA-Public Use
  Company Number: US-MERCK-0805USA00691

PATIENT
  Age: 55 Year
  Sex: Female
  Weight: 65 kg

DRUGS (4)
  1. FOSAMAX [Suspect]
     Indication: OSTEOPENIA
     Route: 048
     Dates: start: 20020821, end: 20060601
  2. FOSAMAX [Suspect]
     Route: 048
  3. [THERAPY UNSPECIFIED] [Concomitant]
     Indication: BLOOD CHOLESTEROL INCREASED
     Route: 065
     Dates: start: 20000101
  4. MIRTAZAPINE [Concomitant]
     Indication: ANXIETY
     Route: 065
     Dates: start: 20000101

REACTIONS (19)
  - BRONCHIECTASIS [None]
  - EMPHYSEMA [None]
  - GASTROOESOPHAGEAL REFLUX DISEASE [None]
  - HEADACHE [None]
  - INCORRECT DOSE ADMINISTERED [None]
  - INTERMITTENT CLAUDICATION [None]
  - JAW DISORDER [None]
  - LUNG NEOPLASM [None]
  - OEDEMA PERIPHERAL [None]
  - OSTEOMYELITIS [None]
  - OSTEONECROSIS [None]
  - OSTEOPOROSIS [None]
  - OVERDOSE [None]
  - PERIODONTAL DISEASE [None]
  - ROTATOR CUFF SYNDROME [None]
  - SPINAL OSTEOARTHRITIS [None]
  - TONGUE DISCOLOURATION [None]
  - UPPER RESPIRATORY TRACT INFECTION [None]
  - URINARY TRACT INFECTION [None]
